FAERS Safety Report 25677689 (Version 2)
Quarter: 2025Q3

REPORT INFORMATION
  Report Type: Report from Study
  Country: US (occurrence: US)
  Receive Date: 20250813
  Receipt Date: 20250927
  Transmission Date: 20251021
  Serious: Yes (Hospitalization, Other)
  Sender: SANOFI AVENTIS
  Company Number: US-SA-2025SA098403

PATIENT
  Age: 62 Year
  Sex: Male

DRUGS (1)
  1. AGALSIDASE BETA [Suspect]
     Active Substance: AGALSIDASE BETA
     Indication: Fabry^s disease
     Dosage: 55 (UNITS NOT PROVIDED) TOTAL DOSE ADMINISTERED, QOW
     Route: 042
     Dates: start: 202503

REACTIONS (18)
  - Gastric ulcer [Not Recovered/Not Resolved]
  - Lethargy [Recovering/Resolving]
  - Hypotension [Not Recovered/Not Resolved]
  - Oxygen saturation decreased [Recovering/Resolving]
  - Weight decreased [Not Recovered/Not Resolved]
  - Weight gain poor [Not Recovered/Not Resolved]
  - Abdominal distension [Not Recovered/Not Resolved]
  - Cardiac disorder [Not Recovered/Not Resolved]
  - Large intestine polyp [Unknown]
  - Feeding disorder [Not Recovered/Not Resolved]
  - Diarrhoea [Not Recovered/Not Resolved]
  - Malnutrition [Not Recovered/Not Resolved]
  - Dehydration [Not Recovered/Not Resolved]
  - Malaise [Not Recovered/Not Resolved]
  - Abdominal pain upper [Not Recovered/Not Resolved]
  - Asthenia [Not Recovered/Not Resolved]
  - Vomiting [Not Recovered/Not Resolved]
  - Fatigue [Unknown]

NARRATIVE: CASE EVENT DATE: 20250101
